FAERS Safety Report 9685797 (Version 1)
Quarter: 2013Q4

REPORT INFORMATION
  Report Type: Spontaneous
  Country: EG (occurrence: US)
  Receive Date: 20131113
  Receipt Date: 20131113
  Transmission Date: 20140711
  Serious: Yes (Other)
  Sender: FDA-Public Use
  Company Number: EG-PFIZER INC-2013323017

PATIENT
  Age: 37 Year
  Sex: Male
  Weight: 90 kg

DRUGS (2)
  1. ADVIL [Suspect]
     Indication: HEADACHE
     Dosage: 200 MG, UP TO 5 TIMES A DAY
     Dates: start: 20131010, end: 201311
  2. ADVIL [Suspect]
     Indication: BACK PAIN

REACTIONS (4)
  - Poor quality drug administered [Unknown]
  - Gastric haemorrhage [Unknown]
  - Product label issue [Unknown]
  - Abdominal pain upper [Unknown]
